FAERS Safety Report 4452788-1 (Version None)
Quarter: 2004Q3

REPORT INFORMATION
  Report Type: 
  Country: None (occurrence: None)
  Receive Date: 20040916
  Receipt Date: 20040914
  Transmission Date: 20050211
  Serious: Yes (Other)
  Sender: FDA-Public Use
  Company Number: THQ2004A00834

PATIENT

DRUGS (1)
  1. ZOTON FASTAB (LANSOPRAZOLE) (TABLETS) [Suspect]
     Dosage: PER ORAL
     Route: 048

REACTIONS (1)
  - RENAL FAILURE [None]
